FAERS Safety Report 8950968 (Version 1)
Quarter: 2012Q4

REPORT INFORMATION
  Report Type: Spontaneous
  Country: GB (occurrence: None)
  Receive Date: 20121128
  Receipt Date: 20121128
  Transmission Date: 20130627
  Serious: Yes (Hospitalization)
  Sender: FDA-Public Use
  Company Number: FK201203460

PATIENT
  Age: 52 Year
  Sex: Female
  Weight: 66 kg

DRUGS (15)
  1. OXALIPLATIN [Suspect]
     Indication: COLORECTAL CANCER METASTATIC
     Dosage: 150 mg, 1 in 14 days, intravenous (not otherwise specified)
     Route: 042
     Dates: start: 20120717
  2. FLUOROURACIL [Suspect]
     Indication: COLORECTAL CANCER METASTATIC
     Dosage: 4150 mg, 1 in 14 days
     Dates: start: 20120717
  3. LEUCOVORIN [Suspect]
     Dosage: 690 mg, 1 in 14 days
     Dates: start: 20120717
  4. MEGF0444A [Suspect]
     Indication: COLORECTAL CANCER METASTATIC
     Dosage: 1 in 1 14 days, intravenous (not otherwise specified)
     Route: 042
     Dates: start: 20120717
  5. BEVACIZUMAB [Suspect]
     Dosage: 330 MG, 1 IN 14 DAYS, INTRAVENOUS (NOT OTHERWISE SPECIFIED)
     Route: 042
     Dates: start: 20120717
  6. VITAMIN B [Concomitant]
  7. FISH OIL (FISH OIL) [Concomitant]
  8. VITAMIN A (RETINOL) [Concomitant]
  9. GLUCOSAMINE (GLUCOSAMINE) [Concomitant]
  10. TROPISETRON (TROPISETRON) [Concomitant]
  11. DEXAMETHASONE (DEXAMETHASONE) [Concomitant]
  12. APREPITANT (APRETPITANT) [Concomitant]
  13. OMEPRAZOLE (OMEPRAZOLE) [Concomitant]
  14. NYSTATIN (NYSTATIN) [Concomitant]
  15. SODIUM CHLORIDE (SODIUM CHLORIDE) [Concomitant]

REACTIONS (1)
  - Non-cardiac chest pain [None]
